FAERS Safety Report 8340867-8 (Version None)
Quarter: 2012Q1

REPORT INFORMATION
  Report Type: 
  Country: None (occurrence: None)
  Receive Date: 20120329
  Receipt Date: 20090319
  Transmission Date: 20120608
  Serious: Yes (Other)
  Sender: FDA-Public Use
  Company Number: PHEH2009US02978

PATIENT
  Sex: Female

DRUGS (5)
  1. BENADRYL /OLD FORM/ (DIPHENHYDRAMINE HYDROCHLORIDE) [Concomitant]
  2. ATIVAN [Concomitant]
  3. SEROQUEL [Concomitant]
  4. NAMENDA [Concomitant]
  5. EXELON [Suspect]
     Dosage: 4.6 MG, TRANSDERMAL
     Route: 062
     Dates: start: 20090101

REACTIONS (3)
  - SEDATION [None]
  - FALL [None]
  - AGITATION [None]
